FAERS Safety Report 9160705 (Version 3)
Quarter: 2013Q3

REPORT INFORMATION
  Report Type: Spontaneous
  Country: JP (occurrence: JP)
  Receive Date: 20130313
  Receipt Date: 20130710
  Transmission Date: 20140515
  Serious: Yes (Other)
  Sender: FDA-Public Use
  Company Number: JP-JNJFOC-20130301606

PATIENT
  Age: 38 Year
  Sex: Male

DRUGS (1)
  1. RISPERDAL [Suspect]
     Indication: SCHIZOPHRENIA
     Route: 048
     Dates: start: 20120715, end: 20120807

REACTIONS (3)
  - Pneumonia aspiration [Unknown]
  - Dysphagia [Recovered/Resolved]
  - Therapeutic response decreased [Unknown]
